FAERS Safety Report 8314248-7 (Version None)
Quarter: 2012Q2

REPORT INFORMATION
  Report Type: 
  Country: None (occurrence: None)
  Receive Date: 20120426
  Receipt Date: 20120417
  Transmission Date: 20120825
  Serious: Yes (Hospitalization)
  Sender: FDA-Public Use
  Company Number: PHHY2011DE102730

PATIENT
  Sex: Male
  Weight: 95 kg

DRUGS (11)
  1. METOPROLOL TARTRATE [Concomitant]
     Indication: HYPERTENSION
     Dosage: 142 MG, QD
     Route: 048
  2. RAMIPRIL [Suspect]
     Indication: HYPERTENSION
     Dosage: 10 MG, QD
     Route: 048
  3. RAMIPRIL [Interacting]
     Dosage: 20 MG, QD
     Route: 048
  4. SIMVASTATIN [Concomitant]
     Dosage: 20 MG, QD
     Route: 048
  5. ASPIRIN [Concomitant]
     Dosage: 100 MG, QD
     Route: 048
  6. LEVOTHYROXINE SODIUM [Concomitant]
     Dosage: 200 UG, QD
     Route: 048
  7. TAMSULOSIN HCL [Concomitant]
     Dosage: 0.4 MG, QD
     Route: 048
  8. LEVOTHYROXINE SODIUM [Concomitant]
     Indication: HYPOTHYROIDISM
     Dosage: 100 UG, QD
     Route: 048
  9. BEGRIPAL [Interacting]
     Indication: IMMUNISATION
     Dosage: .5 ML
     Route: 030
     Dates: start: 20111109, end: 20111109
  10. SIMVASTATIN [Concomitant]
     Indication: HYPERLIPIDAEMIA
     Dosage: 40 MG, QD
     Route: 048
  11. VALSARTAN [Concomitant]
     Route: 048

REACTIONS (10)
  - SCAB [None]
  - SKIN HYPERTROPHY [None]
  - FLUSHING [None]
  - CHILLS [None]
  - SKIN EXFOLIATION [None]
  - PRURITUS [None]
  - RASH MACULO-PAPULAR [None]
  - DRUG INTERACTION [None]
  - DERMATITIS EXFOLIATIVE [None]
  - PAPULE [None]
